FAERS Safety Report 12258390 (Version 1)
Quarter: 2016Q2

REPORT INFORMATION
  Report Type: Spontaneous
  Country: US (occurrence: US)
  Receive Date: 20160412
  Receipt Date: 20160412
  Transmission Date: 20160815
  Serious: No
  Sender: FDA-Public Use
  Company Number: US-SA-2015SA044090

PATIENT
  Age: 65 Year
  Sex: Female

DRUGS (1)
  1. ALLEGRA [Suspect]
     Active Substance: FEXOFENADINE HYDROCHLORIDE
     Indication: HYPERSENSITIVITY
     Dosage: PRODUCT START DATE  IS SEVERAL YEARS
     Route: 048

REACTIONS (3)
  - Malaise [Unknown]
  - Product taste abnormal [Unknown]
  - Product odour abnormal [Unknown]
